FAERS Safety Report 17389023 (Version 1)
Quarter: 2020Q1

REPORT INFORMATION
  Report Type: Spontaneous
  Country: IN (occurrence: IN)
  Receive Date: 20200207
  Receipt Date: 20200207
  Transmission Date: 20200409
  Serious: Yes (Other)
  Sender: FDA-Public Use
  Company Number: IN-PFIZER INC-2019555938

PATIENT
  Sex: Male

DRUGS (1)
  1. CORDARONE X [Suspect]
     Active Substance: AMIODARONE HYDROCHLORIDE
     Dosage: 200 MG, UNK
     Route: 065
     Dates: start: 201704

REACTIONS (8)
  - Refraction disorder [Unknown]
  - Exophthalmos [Unknown]
  - Thyroid disorder [Unknown]
  - Weight increased [Unknown]
  - Eye disorder [Unknown]
  - Visual impairment [Unknown]
  - Eye swelling [Unknown]
  - Erythema [Unknown]
